FAERS Safety Report 11246110 (Version 1)
Quarter: 2015Q3

REPORT INFORMATION
  Report Type: Spontaneous
  Country: IT (occurrence: IT)
  Receive Date: 20150708
  Receipt Date: 20150708
  Transmission Date: 20151125
  Serious: Yes (Hospitalization)
  Sender: FDA-Public Use
  Company Number: IT-009507513-1505ITA008736

PATIENT
  Age: 11 Year
  Sex: Female
  Weight: 56 kg

DRUGS (1)
  1. TRILAFON [Suspect]
     Active Substance: PERPHENAZINE
     Dosage: 1 DOSE UNIT, TOTAL
     Route: 048
     Dates: start: 20150428

REACTIONS (3)
  - Dystonia [Recovered/Resolved]
  - Medication error [Unknown]
  - Metabolic acidosis [Recovered/Resolved]

NARRATIVE: CASE EVENT DATE: 20150429
